FAERS Safety Report 16628101 (Version 1)
Quarter: 2019Q3

REPORT INFORMATION
  Report Type: Spontaneous
  Country: US (occurrence: US)
  Receive Date: 20190612
  Receipt Date: 20190612
  Transmission Date: 20191004
  Serious: Yes (Hospitalization)
  Sender: FDA-Public Use
  Company Number: None

PATIENT
  Age: 55 Year
  Sex: Female

DRUGS (1)
  1. OLUMIANT [Suspect]
     Active Substance: BARICITINIB
     Indication: RHEUMATOID ARTHRITIS
     Route: 048
     Dates: start: 20190227, end: 201905

REACTIONS (4)
  - Therapy cessation [None]
  - Urticaria [None]
  - Hypersensitivity [None]
  - Skin lesion [None]

NARRATIVE: CASE EVENT DATE: 20190515
